FAERS Safety Report 8968958 (Version 1)
Quarter: 2012Q4

REPORT INFORMATION
  Report Type: 
  Country: US (occurrence: US)
  Receive Date: 20121218
  Receipt Date: 20121218
  Transmission Date: 20130627
  Serious: Yes (Other)
  Sender: FDA-Public Use
  Company Number: US-BRISTOL-MYERS SQUIBB COMPANY-16327157

PATIENT
  Age: 49 Year
  Sex: Male

DRUGS (3)
  1. ABILIFY [Suspect]
     Dosage: Dose reduced to 10mg in Mar05, increased to 20mg, changed back to 15mg.
     Dates: start: 2004
  2. ATIVAN [Suspect]
  3. VITAMINS [Concomitant]

REACTIONS (3)
  - Self injurious behaviour [Unknown]
  - Insomnia [Unknown]
  - Drug ineffective [Unknown]
